FAERS Safety Report 6549618-0 (Version None)
Quarter: 2010Q1

REPORT INFORMATION
  Report Type: 
  Country: None (occurrence: None)
  Receive Date: 20100125
  Receipt Date: 20100118
  Transmission Date: 20100710
  Serious: Yes (Other)
  Sender: FDA-Public Use
  Company Number: US-ROCHE-676362

PATIENT
  Sex: Female
  Weight: 131 kg

DRUGS (11)
  1. AVASTIN [Suspect]
     Route: 042
     Dates: start: 20090414
  2. AVASTIN [Suspect]
     Route: 042
     Dates: start: 20090901, end: 20091101
  3. TAMOXIFEN CITRATE [Suspect]
     Dosage: FREQ: DAILY
     Route: 048
  4. PREDNISONE [Concomitant]
     Dosage: STARTED 5-6 DAYS AGO
  5. LEXAPRO [Concomitant]
  6. CARVEDILOL [Concomitant]
  7. PHENERGAN HCL [Concomitant]
  8. COMPAZINE [Concomitant]
  9. VICODIN [Concomitant]
  10. XANAX [Concomitant]
  11. PAXIL [Concomitant]

REACTIONS (2)
  - MUSCULAR WEAKNESS [None]
  - PAIN IN EXTREMITY [None]
